FAERS Safety Report 8886686 (Version 1)
Quarter: 2012Q4

REPORT INFORMATION
  Report Type: 
  Country: JP (occurrence: JP)
  Receive Date: 20121105
  Receipt Date: 20121105
  Transmission Date: 20130627
  Serious: Yes (Life-Threatening, Hospitalization)
  Sender: FDA-Public Use
  Company Number: JP-ASTRAZENECA-2012SE83490

PATIENT
  Age: 41 Year
  Sex: Male

DRUGS (1)
  1. CRESTOR [Suspect]
     Indication: DYSLIPIDAEMIA
     Route: 048
     Dates: start: 20120916, end: 20120925

REACTIONS (4)
  - Quadriplegia [Not Recovered/Not Resolved]
  - Respiratory depression [Unknown]
  - Muscle disorder [Recovering/Resolving]
  - Blood creatine phosphokinase increased [Unknown]
